FAERS Safety Report 6110151-1 (Version None)
Quarter: 2009Q1

REPORT INFORMATION
  Report Type: 
  Country: None (occurrence: None)
  Receive Date: 20090306
  Receipt Date: 20090225
  Transmission Date: 20090719
  Serious: Yes (Hospitalization)
  Sender: FDA-Public Use
  Company Number: 20096249

PATIENT
  Sex: Male

DRUGS (1)
  1. LIORESAL [Suspect]
     Indication: MUSCLE SPASTICITY
     Dosage: 40-90 MCG, DAILY, INTRATHECAL - SEE
     Route: 037

REACTIONS (15)
  - AUTONOMIC DYSREFLEXIA [None]
  - DEVICE FAILURE [None]
  - FAECAL INCONTINENCE [None]
  - GASTRIC DISORDER [None]
  - HEADACHE [None]
  - HEART RATE DECREASED [None]
  - HYPOTONIA [None]
  - MALAISE [None]
  - MUSCLE SPASMS [None]
  - MUSCULOSKELETAL STIFFNESS [None]
  - OVERDOSE [None]
  - SALIVARY HYPERSECRETION [None]
  - VISION BLURRED [None]
  - VOMITING [None]
  - WEIGHT DECREASED [None]
